FAERS Safety Report 7626602-7 (Version None)
Quarter: 2011Q3

REPORT INFORMATION
  Report Type: 
  Country: None (occurrence: None)
  Receive Date: 20110721
  Receipt Date: 20110713
  Transmission Date: 20111222
  Serious: Yes (Other)
  Sender: FDA-Public Use
  Company Number: PL-GLAXOSMITHKLINE-B0734224A

PATIENT
  Age: 39 Year
  Sex: Male

DRUGS (2)
  1. PAROXETINE HCL [Suspect]
     Indication: DEPRESSION
     Route: 065
  2. CITALOPRAM HYDROBROMIDE [Suspect]
     Route: 065

REACTIONS (2)
  - PULMONARY EMBOLISM [None]
  - EMBOLISM VENOUS [None]
